FAERS Safety Report 18253250 (Version 2)
Quarter: 2020Q4

REPORT INFORMATION
  Report Type: Report from Study
  Country: RU (occurrence: RU)
  Receive Date: 20200910
  Receipt Date: 20201005
  Transmission Date: 20210113
  Serious: Yes (Other)
  Sender: FDA-Public Use
  Company Number: NVSC2020RU244531

PATIENT
  Age: 33 Year
  Sex: Female
  Weight: 73 kg

DRUGS (3)
  1. BYL719 [Suspect]
     Active Substance: ALPELISIB
     Indication: BREAST CANCER
     Dosage: 300 MG, QD
     Route: 048
     Dates: start: 20200728, end: 20200806
  2. BYL719 [Suspect]
     Active Substance: ALPELISIB
     Dosage: 300 MG
     Route: 048
     Dates: start: 20200811, end: 20200821
  3. BYL719 [Suspect]
     Active Substance: ALPELISIB
     Dosage: 250 MG, QD
     Route: 048
     Dates: start: 20200821, end: 20200823

REACTIONS (6)
  - Hyperglycaemia [Recovered/Resolved]
  - Hyperglycaemia [Not Recovered/Not Resolved]
  - Pyrexia [Recovered/Resolved]
  - Stomatitis [Recovered/Resolved]
  - Rash maculo-papular [Recovering/Resolving]
  - Febrile neutropenia [Recovered/Resolved]

NARRATIVE: CASE EVENT DATE: 20200803
